FAERS Safety Report 8591002-2 (Version None)
Quarter: 2012Q3

REPORT INFORMATION
  Report Type: 
  Country: None (occurrence: None)
  Receive Date: 20120813
  Receipt Date: 20120806
  Transmission Date: 20120928
  Serious: Yes (Other)
  Sender: FDA-Public Use
  Company Number: JP-VERTEX PHARMACEUTICALS INC.-AE-2012-011911

PATIENT
  Age: 64 Year
  Sex: Male

DRUGS (11)
  1. REBETOL [Concomitant]
     Indication: HEPATITIS C
     Route: 048
     Dates: start: 20120619, end: 20120703
  2. REBETOL [Concomitant]
     Route: 048
     Dates: start: 20120801
  3. BASEN [Concomitant]
     Route: 048
  4. REBETOL [Concomitant]
     Route: 048
     Dates: start: 20120704, end: 20120730
  5. NORVASC [Concomitant]
     Route: 048
  6. PEG-INTRON [Concomitant]
     Route: 058
     Dates: start: 20120725
  7. AMARYL [Concomitant]
     Route: 048
  8. TELAVIC (TELAPREVIR) [Suspect]
     Indication: HEPATITIS C
     Route: 048
     Dates: start: 20120619, end: 20120730
  9. PEG-INTRON [Concomitant]
     Indication: HEPATITIS C
     Route: 058
     Dates: start: 20120619, end: 20120626
  10. PEG-INTRON [Concomitant]
     Route: 058
     Dates: start: 20120704, end: 20120719
  11. SITAGLIPTIN PHOSPHATE [Concomitant]
     Route: 048

REACTIONS (4)
  - VOMITING [None]
  - NAUSEA [None]
  - MALAISE [None]
  - TOXIC SKIN ERUPTION [None]
